FAERS Safety Report 7583330-4 (Version None)
Quarter: 2011Q2

REPORT INFORMATION
  Report Type: 
  Country: None (occurrence: None)
  Receive Date: 20110627
  Receipt Date: 20110627
  Transmission Date: 20111010
  Serious: Yes (Other)
  Sender: FDA-Public Use
  Company Number: None

PATIENT
  Age: 18 Year
  Sex: Female
  Weight: 86 kg

DRUGS (1)
  1. ACETADOTE [Suspect]
     Indication: OVERDOSE
     Dosage: 150MG/KG ONE TIME IV BOLUS
     Route: 040
     Dates: start: 20110621, end: 20110621

REACTIONS (2)
  - PRURITUS [None]
  - URTICARIA [None]
